FAERS Safety Report 5896435-0 (Version None)
Quarter: 2008Q3

REPORT INFORMATION
  Report Type: 
  Country: None (occurrence: None)
  Receive Date: 20080924
  Receipt Date: 20070709
  Transmission Date: 20090109
  Serious: Yes (Other)
  Sender: FDA-Public Use
  Company Number: US-BAYER-200711726BWH

PATIENT
  Age: 33 Year
  Sex: Female
  Weight: 64 kg

DRUGS (3)
  1. AVELOX [Suspect]
     Indication: UPPER RESPIRATORY TRACT INFECTION
     Route: 048
  2. NUVARING [Concomitant]
  3. XANAX [Concomitant]

REACTIONS (4)
  - ANAPHYLACTIC REACTION [None]
  - LIP SWELLING [None]
  - SWELLING FACE [None]
  - URTICARIA [None]
